FAERS Safety Report 7078744 (Version 3)
Quarter: 2013Q4

REPORT INFORMATION
  Report Type: Spontaneous
  Country: US (occurrence: None)
  Receive Date: 20090805
  Receipt Date: 20131104
  Transmission Date: 20140711
  Serious: Yes (Other)
  Sender: FDA-Public Use
  Company Number: 2009S1005846

PATIENT
  Age: 51 Year
  Sex: Female
  Weight: 70.31 kg

DRUGS (3)
  1. FLEET PHOSPHO-SODA [Suspect]
     Indication: COLONOSCOPY
     Dosage: 90 ML 2 IN 24 HOURS, ORAL
     Route: 048
     Dates: start: 200801, end: 200801
  2. ATENOLOL [Concomitant]
  3. SUPER HIGH POTENCY B VITAMIN [Concomitant]

REACTIONS (1)
  - Renal failure chronic [None]
